FAERS Safety Report 7433892-2 (Version None)
Quarter: 2011Q2

REPORT INFORMATION
  Report Type: 
  Country: None (occurrence: None)
  Receive Date: 20110418
  Receipt Date: 20110330
  Transmission Date: 20111010
  Serious: Yes (Death)
  Sender: FDA-Public Use
  Company Number: AUR-APL-2011-01090

PATIENT
  Age: 89 Year
  Sex: Female

DRUGS (15)
  1. LEVODOPA [Concomitant]
  2. IRON [Concomitant]
  3. AMOXICILLIN [Concomitant]
  4. RISPERIDONE [Suspect]
     Indication: PARKINSON'S DISEASE
     Dosage: ORAL
     Route: 048
  5. ROPINIROLE [Suspect]
     Indication: PARKINSON'S DISEASE
     Dosage: 3, 6 MG, DAILY, ORAL
     Route: 048
  6. SINEMET [Concomitant]
  7. FORTISIP [Concomitant]
  8. LACTULOSE [Concomitant]
  9. CARBIMAZOLE [Concomitant]
  10. BISOPROLOL [Concomitant]
  11. DIGOXIN [Concomitant]
  12. CARBIDOPA [Concomitant]
  13. ACETYL SALICYLIC ACID USP BAT [Concomitant]
  14. FUROSEMIDE [Concomitant]
  15. SPARTEINE SULPHATE [Concomitant]

REACTIONS (1)
  - WRONG DRUG ADMINISTERED [None]
